FAERS Safety Report 20718308 (Version 1)
Quarter: 2022Q2

REPORT INFORMATION
  Report Type: Spontaneous
  Country: US (occurrence: US)
  Receive Date: 20220418
  Receipt Date: 20220418
  Transmission Date: 20220721
  Serious: No
  Sender: FDA-Public Use
  Company Number: US-UROGEN PHARMA LTD.-2022-UGN-000028

PATIENT

DRUGS (7)
  1. JELMYTO [Suspect]
     Active Substance: MITOMYCIN
     Indication: Transitional cell cancer of the renal pelvis and ureter
     Dosage: ONE TIMES PER WEEK (INSTILLATION)
     Dates: start: 20211101, end: 20211101
  2. JELMYTO [Suspect]
     Active Substance: MITOMYCIN
     Dosage: ONE TIMES PER WEEK (INSTILLATION)
     Dates: start: 20211108, end: 20211108
  3. JELMYTO [Suspect]
     Active Substance: MITOMYCIN
     Dosage: ONE TIMES PER WEEK (INSTILLATION)
     Dates: start: 20211115, end: 20211115
  4. JELMYTO [Suspect]
     Active Substance: MITOMYCIN
     Dosage: ONE TIMES PER WEEK (INSTILLATION)
     Dates: start: 20211122, end: 20211122
  5. JELMYTO [Suspect]
     Active Substance: MITOMYCIN
     Dosage: ONE TIMES PER WEEK (INSTILLATION)
     Dates: start: 20211129, end: 20211129
  6. JELMYTO [Suspect]
     Active Substance: MITOMYCIN
     Dosage: ONE TIMES PER WEEK (INSTILLATION)
     Dates: start: 20211206, end: 20211206
  7. JELMYTO [Suspect]
     Active Substance: MITOMYCIN
     Dosage: UNK (INSTILLATION)
     Dates: start: 20220208, end: 20220208

REACTIONS (1)
  - Urinary tract infection [Unknown]

NARRATIVE: CASE EVENT DATE: 20220316
